FAERS Safety Report 4289038-5 (Version None)
Quarter: 2004Q1

REPORT INFORMATION
  Report Type: 
  Country: None (occurrence: None)
  Receive Date: 20040126
  Receipt Date: 20030825
  Transmission Date: 20041129
  Serious: No
  Sender: FDA-Public Use
  Company Number: USA030740631

PATIENT
  Age: 80 Year
  Sex: Female
  Weight: 51 kg

DRUGS (11)
  1. FORTEO [Suspect]
     Indication: OSTEOPOROSIS
     Dosage: 20 UG/DAY
     Dates: start: 20030616
  2. PLAQUENIL [Concomitant]
  3. HYZAAR [Concomitant]
  4. NEURONTIN [Concomitant]
  5. SEREVENT [Concomitant]
  6. MAGNESIUM [Concomitant]
  7. VITAMIN D [Concomitant]
  8. FOSAMAX [Concomitant]
  9. QUININE [Concomitant]
  10. VITAMIN B COMPLEX CAP [Concomitant]
  11. SYNTHROID [Concomitant]

REACTIONS (12)
  - ASTHENIA [None]
  - BLOOD PRESSURE DECREASED [None]
  - CONSTIPATION [None]
  - DIZZINESS [None]
  - EUPHORIC MOOD [None]
  - FEELING JITTERY [None]
  - GAIT DISTURBANCE [None]
  - HYPERSENSITIVITY [None]
  - INSOMNIA [None]
  - MUSCLE CRAMP [None]
  - MUSCULAR WEAKNESS [None]
  - PAIN [None]
